FAERS Safety Report 9365265 (Version 1)
Quarter: 2013Q2

REPORT INFORMATION
  Report Type: Spontaneous
  Country: US (occurrence: US)
  Receive Date: 20130625
  Receipt Date: 20130625
  Transmission Date: 20140414
  Serious: No
  Sender: FDA-Public Use
  Company Number: US-B.I. PHARMACEUTICALS,INC./RIDGEFIELD-2013-BI-17433BP

PATIENT
  Sex: Female
  Weight: 91 kg

DRUGS (3)
  1. SPIRIVA [Suspect]
     Indication: EMPHYSEMA
     Dosage: 18 MCG
     Route: 055
     Dates: start: 2008
  2. DILTIAZEM ER [Concomitant]
     Indication: PALPITATIONS
     Dosage: 120 MG
     Route: 048
     Dates: start: 2011
  3. OMEPRAZOLE [Concomitant]
     Indication: DUODENOGASTRIC REFLUX
     Route: 048
     Dates: start: 2004

REACTIONS (2)
  - Nasal dryness [Not Recovered/Not Resolved]
  - Dry throat [Not Recovered/Not Resolved]
